FAERS Safety Report 12073385 (Version 2)
Quarter: 2016Q1

REPORT INFORMATION
  Report Type: Spontaneous
  Country: US (occurrence: US)
  Receive Date: 20160212
  Receipt Date: 20160307
  Transmission Date: 20160526
  Serious: Yes (Other)
  Sender: FDA-Public Use
  Company Number: US-BEH-2016058689

PATIENT
  Sex: Female
  Weight: 48 kg

DRUGS (15)
  1. LIDOCAINE/PRILOCAINE [Concomitant]
  2. HCTZ [Concomitant]
     Active Substance: HYDROCHLOROTHIAZIDE
  3. PROAIR HFA [Concomitant]
     Active Substance: ALBUTEROL SULFATE
  4. ZEMAIRA [Suspect]
     Active Substance: .ALPHA.1-PROTEINASE INHIBITOR HUMAN
     Indication: ALPHA-1 ANTI-TRYPSIN DEFICIENCY
     Route: 042
  5. SPIRIVA [Concomitant]
     Active Substance: TIOTROPIUM BROMIDE MONOHYDRATE
  6. OXYGEN. [Concomitant]
     Active Substance: OXYGEN
  7. HEPARIN [Concomitant]
     Active Substance: HEPARIN SODIUM
  8. EPIPEN [Concomitant]
     Active Substance: EPINEPHRINE
  9. ALBUTEROL. [Concomitant]
     Active Substance: ALBUTEROL
  10. PREDNISONE. [Concomitant]
     Active Substance: PREDNISONE
  11. XANAX [Concomitant]
     Active Substance: ALPRAZOLAM
  12. DIPHENHYDRAMINE. [Concomitant]
     Active Substance: DIPHENHYDRAMINE
  13. LISINOPRIL. [Concomitant]
     Active Substance: LISINOPRIL
  14. AZITHROMYCIN ANHYDROUS. [Concomitant]
     Active Substance: AZITHROMYCIN ANHYDROUS
  15. SODIUM CHLORIDE. [Concomitant]
     Active Substance: SODIUM CHLORIDE

REACTIONS (5)
  - Productive cough [Unknown]
  - Weight decreased [Unknown]
  - Oropharyngeal pain [Unknown]
  - Ill-defined disorder [Unknown]
  - Lower respiratory tract congestion [Unknown]
